FAERS Safety Report 8871349 (Version 1)
Quarter: 2012Q4

REPORT INFORMATION
  Report Type: Spontaneous
  Country: US (occurrence: None)
  Receive Date: 20121026
  Receipt Date: 20121026
  Transmission Date: 20130627
  Serious: Yes (Life-Threatening)
  Sender: FDA-Public Use
  Company Number: None

PATIENT
  Age: 70 Year
  Sex: Male
  Weight: 82 kg

DRUGS (2)
  1. DAPTOMYCIN [Suspect]
     Indication: STAPHYLOCOCCAL BACTEREMIA
     Route: 042
     Dates: start: 20121002, end: 20121020
  2. AMIODARONE [Suspect]
     Route: 048
     Dates: start: 20120917, end: 20121023

REACTIONS (4)
  - Sepsis [None]
  - Staphylococcus test positive [None]
  - Movement disorder [None]
  - Eosinophilic pneumonia [None]
